FAERS Safety Report 10600269 (Version 1)
Quarter: 2014Q4

REPORT INFORMATION
  Report Type: Other
  Country: GB (occurrence: GB)
  Receive Date: 20141123
  Receipt Date: 20141123
  Transmission Date: 20150529
  Serious: Yes (Other)
  Sender: FDA-Public Use
  Company Number: GB-MYLANLABS-2014M1010639

PATIENT

DRUGS (12)
  1. CHLORPHENAMINE [Concomitant]
     Active Substance: CHLORPHENIRAMINE MALEATE
     Dosage: UNK
  2. CLOPIDOGREL [Concomitant]
     Active Substance: CLOPIDOGREL BISULFATE
     Dosage: UNK
  3. NOVOMIX [Concomitant]
     Active Substance: INSULIN ASPART
     Dosage: UNK
  4. COCODAMOL [Concomitant]
     Active Substance: ACETAMINOPHEN\CODEINE PHOSPHATE
     Dosage: UNK
  5. LANSOPRAZOL [Concomitant]
     Active Substance: LANSOPRAZOLE
     Dosage: UNK
  6. ATENOLOL. [Concomitant]
     Active Substance: ATENOLOL
     Dosage: UNK
  7. SODIUM FUSIDATE [Concomitant]
     Active Substance: FUSIDATE SODIUM
     Dosage: UNK
  8. AMITRIPTYLINE [Concomitant]
     Active Substance: AMITRIPTYLINE
     Dosage: UNK
  9. GAVISCON [Concomitant]
     Active Substance: ALUMINUM HYDROXIDE\MAGNESIUM CARBONATE
     Dosage: UNK
  10. DOXYCYCLINE. [Suspect]
     Active Substance: DOXYCYCLINE
     Indication: OSTEOMYELITIS
     Dosage: 100 MG, BID
     Route: 048
     Dates: start: 20140814, end: 20141009
  11. FLUCLOXACILLIN [Concomitant]
     Active Substance: FLUCLOXACILLIN
     Dosage: UNK
  12. METRONIDAZOLE. [Concomitant]
     Active Substance: METRONIDAZOLE
     Dosage: UNK

REACTIONS (3)
  - Rash [Recovered/Resolved]
  - Face oedema [Recovered/Resolved]
  - Localised oedema [Recovered/Resolved]

NARRATIVE: CASE EVENT DATE: 20140922
